FAERS Safety Report 6414160-4 (Version None)
Quarter: 2009Q4

REPORT INFORMATION
  Report Type: 
  Country: None (occurrence: None)
  Receive Date: 20091026
  Receipt Date: 20091019
  Transmission Date: 20100525
  Serious: Yes (Other)
  Sender: FDA-Public Use
  Company Number: US-PFIZER INC-2009262452

PATIENT
  Sex: Female

DRUGS (1)
  1. DETROL [Suspect]
     Dosage: UNK

REACTIONS (2)
  - AMNESIA [None]
  - BRAIN INJURY [None]
